FAERS Safety Report 4352824-7 (Version None)
Quarter: 2004Q2

REPORT INFORMATION
  Report Type: 
  Country: None (occurrence: None)
  Receive Date: 20040429
  Receipt Date: 20040420
  Transmission Date: 20050107
  Serious: Yes (Hospitalization)
  Sender: FDA-Public Use
  Company Number: 2004UW06766

PATIENT
  Age: 80 Year
  Sex: Female
  Weight: 59.8748 kg

DRUGS (6)
  1. TAMOXIFEN CITRATE [Suspect]
     Indication: BREAST CANCER
     Dates: start: 20010101, end: 20020101
  2. CENTRUM [Concomitant]
  3. CALCIUM WITH VITAMIN D [Interacting]
  4. VITAMIN B6 [Concomitant]
  5. GLUCOTROL [Concomitant]
  6. COUMADIN [Concomitant]

REACTIONS (2)
  - FOOT FRACTURE [None]
  - THROMBOSIS [None]
